FAERS Safety Report 25932520 (Version 1)
Quarter: 2025Q4

REPORT INFORMATION
  Report Type: Spontaneous
  Country: US (occurrence: US)
  Receive Date: 20251017
  Receipt Date: 20251017
  Transmission Date: 20260118
  Serious: No
  Sender: TP ANDA HOLDINGS, LLC
  Company Number: US-TP_ANDA_HOLDINGS-2025TP00003

PATIENT
  Age: 79 Year
  Weight: 185 kg

DRUGS (2)
  1. BISOPROLOL FUMARATE [Suspect]
     Active Substance: BISOPROLOL FUMARATE
     Indication: Hypertension
     Dates: start: 20231230, end: 20250929
  2. BISOPROLOL FUMARATE [Suspect]
     Active Substance: BISOPROLOL FUMARATE
     Indication: Heart rate

REACTIONS (10)
  - Blood sodium increased [Recovering/Resolving]
  - Hot flush [Recovering/Resolving]
  - Thyroid disorder [Recovering/Resolving]
  - Headache [Recovering/Resolving]
  - Liver disorder [Recovering/Resolving]
  - Documented hypersensitivity to administered product [Unknown]
  - Dyspepsia [Recovering/Resolving]
  - Pruritus [Recovering/Resolving]
  - Asthenia [Recovering/Resolving]
  - Product substitution issue [Unknown]

NARRATIVE: CASE EVENT DATE: 20250913
